FAERS Safety Report 15593139 (Version 1)
Quarter: 2018Q4

REPORT INFORMATION
  Report Type: Spontaneous
  Country: US (occurrence: US)
  Receive Date: 20181107
  Receipt Date: 20181107
  Transmission Date: 20190205
  Serious: Yes (Life-Threatening, Hospitalization)
  Sender: FDA-Public Use
  Company Number: None

PATIENT
  Age: 85 Year
  Sex: Male

DRUGS (1)
  1. RIVAROXABAN [Suspect]
     Active Substance: RIVAROXABAN

REACTIONS (5)
  - Melaena [None]
  - Gastrointestinal haemorrhage [None]
  - Varices oesophageal [None]
  - Colitis [None]
  - Blood pressure decreased [None]

NARRATIVE: CASE EVENT DATE: 20180818
